FAERS Safety Report 7580400-1 (Version None)
Quarter: 2011Q2

REPORT INFORMATION
  Report Type: 
  Country: None (occurrence: None)
  Receive Date: 20110629
  Receipt Date: 20110614
  Transmission Date: 20111010
  Serious: Yes (Other)
  Sender: FDA-Public Use
  Company Number: US-AMGEN-USASP2011030520

PATIENT
  Age: 61 Year
  Sex: Female

DRUGS (1)
  1. ENBREL [Suspect]
     Indication: RHEUMATOID ARTHRITIS
     Dosage: 50 MG, QWK
     Dates: start: 20070501

REACTIONS (6)
  - MENISCUS LESION [None]
  - OEDEMA PERIPHERAL [None]
  - INJECTION SITE PAIN [None]
  - OSTEOARTHRITIS [None]
  - PROCEDURAL COMPLICATION [None]
  - GAIT DISTURBANCE [None]
